FAERS Safety Report 21284803 (Version 1)
Quarter: 2022Q3

REPORT INFORMATION
  Report Type: Spontaneous
  Country: US (occurrence: US)
  Receive Date: 20220902
  Receipt Date: 20220902
  Transmission Date: 20221027
  Serious: No
  Sender: FDA-Public Use
  Company Number: ENDG22-01125

PATIENT
  Age: 74 Year
  Sex: Female

DRUGS (2)
  1. PREDNISONE [Suspect]
     Active Substance: PREDNISONE
     Indication: Rhinorrhoea
     Dosage: UNK UNKNOWN (21 PILLS), UNKNOWN
     Route: 065
  2. UNSPECIFIED INGREDIENT [Concomitant]
     Active Substance: UNSPECIFIED INGREDIENT
     Indication: Rhinorrhoea
     Dosage: UNK UNKNOWN, UNKNOWN
     Route: 065

REACTIONS (4)
  - Upper-airway cough syndrome [Unknown]
  - Sneezing [Unknown]
  - Drug ineffective for unapproved indication [Unknown]
  - Off label use [Recovered/Resolved]
